FAERS Safety Report 25676150 (Version 1)
Quarter: 2025Q3

REPORT INFORMATION
  Report Type: Spontaneous
  Country: CA (occurrence: CA)
  Receive Date: 20250813
  Receipt Date: 20250813
  Transmission Date: 20251021
  Serious: Yes (Hospitalization, Disabling, Other)
  Sender: JOHNSON AND JOHNSON
  Company Number: CA-JNJFOC-20250810979

PATIENT
  Age: 78 Year
  Sex: Female

DRUGS (2)
  1. USTEKINUMAB [Suspect]
     Active Substance: USTEKINUMAB
     Indication: Psoriasis
     Dosage: DURATION: 28 DAYS
     Route: 058
  2. USTEKINUMAB [Suspect]
     Active Substance: USTEKINUMAB
     Indication: Colitis

REACTIONS (3)
  - Myelitis [Recovering/Resolving]
  - Intentional product use issue [Unknown]
  - Off label use [Unknown]
